FAERS Safety Report 17657733 (Version 1)
Quarter: 2020Q2

REPORT INFORMATION
  Report Type: Report from Study
  Country: None (occurrence: US)
  Receive Date: 20200411
  Receipt Date: 20200411
  Transmission Date: 20200713
  Serious: Yes (Other)
  Sender: FDA-Public Use
  Company Number: US-ABBVIE-20P-163-3357775-00

PATIENT
  Sex: Male

DRUGS (1)
  1. IMBRUVICA [Suspect]
     Active Substance: IBRUTINIB
     Indication: CHRONIC LYMPHOCYTIC LEUKAEMIA
     Route: 048
     Dates: start: 20181124

REACTIONS (5)
  - Nail growth abnormal [Unknown]
  - Palpitations [Unknown]
  - Central nervous system lesion [Unknown]
  - Onychoclasis [Unknown]
  - Increased tendency to bruise [Unknown]
